FAERS Safety Report 7434039-9 (Version None)
Quarter: 2011Q2

REPORT INFORMATION
  Report Type: 
  Country: None (occurrence: None)
  Receive Date: 20110421
  Receipt Date: 20110421
  Transmission Date: 20111010
  Serious: Yes (Death, Life-Threatening, Hospitalization, Disabling, Congenital Anomaly, Other)
  Sender: FDA-Public Use
  Company Number: None

PATIENT
  Age: 70 Year
  Sex: Male
  Weight: 99.7913 kg

DRUGS (2)
  1. VENLAFAXINE [Suspect]
     Indication: ANXIETY
     Dosage: 225 MG DAILY PO
     Route: 048
     Dates: start: 20110125, end: 20110326
  2. VENLAFAXINE [Suspect]
     Indication: DEPRESSION
     Dosage: 225 MG DAILY PO
     Route: 048
     Dates: start: 20110125, end: 20110326

REACTIONS (2)
  - MEDICATION RESIDUE [None]
  - TINNITUS [None]
